FAERS Safety Report 6558226-7 (Version None)
Quarter: 2010Q1

REPORT INFORMATION
  Report Type: 
  Country: None (occurrence: None)
  Receive Date: 20100127
  Receipt Date: 20100127
  Transmission Date: 20100710
  Serious: Yes (Hospitalization)
  Sender: FDA-Public Use
  Company Number: None

PATIENT
  Age: 81 Year
  Sex: Male
  Weight: 74.2 kg

DRUGS (9)
  1. DILANTIN [Suspect]
     Indication: CONVULSION
     Dosage: 100MG QAM PO, CHRONIC
     Route: 048
  2. DILANTIN [Suspect]
     Indication: CONVULSION
     Dosage: 200 MG QHS PO, CHRONIC
     Route: 048
  3. THALIDOMIDE [Concomitant]
  4. ALLOPURINOL [Concomitant]
  5. PRAVASTATIN [Concomitant]
  6. LISINOPRIL [Concomitant]
  7. DEXAMETHASONE [Concomitant]
  8. HYDROCODONE BITARTRATE AND ACETAMINOPHEN [Concomitant]
  9. NORVASC [Concomitant]

REACTIONS (8)
  - ANAEMIA [None]
  - ANTICONVULSANT DRUG LEVEL ABOVE THERAPEUTIC [None]
  - ASTHENIA [None]
  - BLOOD UREA INCREASED [None]
  - CONVULSION [None]
  - DIZZINESS [None]
  - HYPERKALAEMIA [None]
  - HYPONATRAEMIA [None]
